FAERS Safety Report 10672233 (Version 1)
Quarter: 2014Q4

REPORT INFORMATION
  Report Type: Spontaneous
  Country: US (occurrence: US)
  Receive Date: 20141223
  Receipt Date: 20141223
  Transmission Date: 20150529
  Serious: No
  Sender: FDA-Public Use
  Company Number: US-TEVA-523239USA

PATIENT
  Sex: Female

DRUGS (3)
  1. LEVADOPA/CARBIDOPA [Concomitant]
     Indication: PARKINSON^S DISEASE
  2. NEUPRO [Concomitant]
     Active Substance: ROTIGOTINE
     Indication: PARKINSON^S DISEASE
     Route: 062
  3. AZILECT [Suspect]
     Active Substance: RASAGILINE MESYLATE
     Indication: PARKINSON^S DISEASE
     Route: 065

REACTIONS (3)
  - Dyskinesia [Unknown]
  - Gait disturbance [Unknown]
  - Adverse event [Unknown]
